FAERS Safety Report 10526311 (Version 2)
Quarter: 2014Q4

REPORT INFORMATION
  Report Type: Report from Study
  Country: AR (occurrence: AR)
  Receive Date: 20141019
  Receipt Date: 20141019
  Transmission Date: 20150528
  Serious: Yes (Hospitalization, Other)
  Sender: FDA-Public Use
  Company Number: AR-ABBVIE-14K-007-1254996-00

PATIENT
  Age: 70 Year
  Sex: Female

DRUGS (3)
  1. ARTRAIT [Concomitant]
     Active Substance: METHOTREXATE SODIUM
     Indication: RHEUMATOID ARTHRITIS
     Route: 048
  2. ANESTHESIA [Suspect]
     Active Substance: UNSPECIFIED INGREDIENT
     Indication: PRODUCT USED FOR UNKNOWN INDICATION
     Route: 065
  3. HUMIRA [Suspect]
     Active Substance: ADALIMUMAB
     Indication: RHEUMATOID ARTHRITIS
     Route: 058
     Dates: start: 20080101, end: 20140610

REACTIONS (8)
  - Anaemia [Unknown]
  - Mobility decreased [Unknown]
  - Urinary tract infection [Recovering/Resolving]
  - Delirium [Recovered/Resolved]
  - Dysstasia [Unknown]
  - Hypertension [Unknown]
  - Abnormal behaviour [Unknown]
  - Intervertebral disc protrusion [Recovered/Resolved]

NARRATIVE: CASE EVENT DATE: 201308
